FAERS Safety Report 8327481-5 (Version None)
Quarter: 2012Q2

REPORT INFORMATION
  Report Type: 
  Country: None (occurrence: None)
  Receive Date: 20120502
  Receipt Date: 20120423
  Transmission Date: 20120825
  Serious: Yes (Other)
  Sender: FDA-Public Use
  Company Number: US-BAYER-2011-012981

PATIENT
  Age: 21 Year
  Sex: Female
  Weight: 61.224 kg

DRUGS (21)
  1. DROSPIRENONE AND ETHINYL ESTRADIOL [Suspect]
     Indication: CONTRACEPTION
     Dosage: UNK
     Dates: start: 20080923, end: 20091026
  2. SERTRALINE HYDROCHLORIDE [Concomitant]
     Indication: ANXIETY
  3. YASMIN [Suspect]
     Indication: CONTRACEPTION
     Dosage: UNK
     Dates: start: 20060915, end: 20080619
  4. REMERON [Concomitant]
  5. NASONEX [Concomitant]
  6. LORTAB [Concomitant]
     Dosage: 1 AS NEEDED
     Route: 048
  7. CENTRUM [Concomitant]
  8. YASMIN [Suspect]
     Indication: PREMENSTRUAL SYNDROME
  9. AMOXICILLIN [Concomitant]
     Dosage: UNK
     Dates: start: 20100310, end: 20100329
  10. CALCIUM CARBONATE [Concomitant]
     Indication: BLOOD CALCIUM ABNORMAL
     Dosage: UNK
  11. FEXOFENADINE [Concomitant]
     Dosage: UNK
     Dates: start: 20100302
  12. PROMETHAZINE [Concomitant]
     Dosage: UNK
     Dates: start: 20100329
  13. CALCIUM [Concomitant]
  14. VITAMIN TAB [Concomitant]
     Dosage: UNK
  15. VITAMIN D [Concomitant]
  16. SERTRALINE HYDROCHLORIDE [Concomitant]
     Indication: OBSESSIVE-COMPULSIVE DISORDER
  17. SERTRALINE HYDROCHLORIDE [Concomitant]
     Indication: DEPRESSION
     Dosage: UNK
     Dates: start: 20090410, end: 20110517
  18. MIRTAZAPINE [Concomitant]
     Dosage: UNK
     Dates: start: 20100305
  19. BENZONATATE [Concomitant]
     Dosage: UNK
     Dates: start: 20100329
  20. ORTHO TRI-CYCLEN [Concomitant]
  21. DROSPIRENONE AND ETHINYL ESTRADIOL [Suspect]
     Indication: PREMENSTRUAL SYNDROME

REACTIONS (12)
  - GALLBLADDER CHOLESTEROLOSIS [None]
  - GENERAL PHYSICAL HEALTH DETERIORATION [None]
  - VOMITING [None]
  - GALLBLADDER DISORDER [None]
  - WEIGHT INCREASED [None]
  - BILIARY DYSKINESIA [None]
  - EOSINOPHILIC OESOPHAGITIS [None]
  - PAIN [None]
  - INJURY [None]
  - CHOLECYSTITIS CHRONIC [None]
  - GASTROOESOPHAGEAL REFLUX DISEASE [None]
  - ABDOMINAL DISTENSION [None]
